FAERS Safety Report 19503758 (Version 4)
Quarter: 2025Q4

REPORT INFORMATION
  Report Type: Spontaneous
  Country: EU (occurrence: EU)
  Receive Date: 20210707
  Receipt Date: 20251119
  Transmission Date: 20260117
  Serious: Yes (Hospitalization, Other)
  Sender: PFIZER
  Company Number: EU-PFIZER INC-2021558719

PATIENT
  Age: 2 Year
  Sex: Female
  Weight: 11.16 kg

DRUGS (5)
  1. UNASYN [Suspect]
     Active Substance: AMPICILLIN SODIUM\SULBACTAM SODIUM
     Indication: Spinal muscular atrophy
     Dosage: 0.625 MG/KG, DAILY
     Dates: start: 20210226
  2. UNASYN [Suspect]
     Active Substance: AMPICILLIN SODIUM\SULBACTAM SODIUM
     Indication: Product used for unknown indication
  3. FURAZIDINE [Concomitant]
     Active Substance: FURAZIDINE
     Dosage: UNK
  4. DICOPEG JUNIOR [Concomitant]
     Dosage: UNK
  5. CHOLECALCIFEROL [Concomitant]
     Active Substance: CHOLECALCIFEROL
     Dosage: UNK
     Dates: start: 20181025, end: 20210122

REACTIONS (5)
  - Pyrexia [Unknown]
  - Vomiting [Unknown]
  - Diarrhoea [Unknown]
  - Drug eruption [Recovered/Resolved]
  - Gastrointestinal infection [Recovered/Resolved]

NARRATIVE: CASE EVENT DATE: 20210304
